FAERS Safety Report 9278551 (Version 1)
Quarter: 2013Q2

REPORT INFORMATION
  Report Type: Spontaneous
  Country: BE (occurrence: BE)
  Receive Date: 20130508
  Receipt Date: 20130508
  Transmission Date: 20140414
  Serious: Yes (Death)
  Sender: FDA-Public Use
  Company Number: BE-AMGEN-BELSP2013015981

PATIENT
  Sex: Male

DRUGS (5)
  1. XGEVA [Suspect]
     Indication: METASTASES TO BONE
     Dosage: UNK UNK, QMO
     Route: 058
     Dates: start: 201301, end: 2013
  2. DEXAMETHASONE [Concomitant]
     Dosage: UNK
     Route: 048
     Dates: start: 2012
  3. LITICAN                            /00690801/ [Concomitant]
     Dosage: UNK
     Route: 048
     Dates: start: 2012
  4. LORMETAZEPAM [Concomitant]
     Dosage: UNK
     Route: 048
     Dates: start: 2012
  5. D VITA [Concomitant]

REACTIONS (2)
  - Non-small cell lung cancer [Fatal]
  - Feeling abnormal [Recovered/Resolved]
